FAERS Safety Report 7565164-X (Version None)
Quarter: 2011Q2

REPORT INFORMATION
  Report Type: 
  Country: None (occurrence: None)
  Receive Date: 20110622
  Receipt Date: 20110607
  Transmission Date: 20111010
  Serious: Yes (Hospitalization)
  Sender: FDA-Public Use
  Company Number: FR-GENENTECH-319997

PATIENT
  Sex: Female
  Weight: 57 kg

DRUGS (4)
  1. BEVACIZUMAB [Suspect]
     Indication: NON-SMALL CELL LUNG CANCER
     Dosage: 855 UNK, Q3W
     Route: 042
     Dates: start: 20110527
  2. PACLITAXEL [Suspect]
     Indication: NON-SMALL CELL LUNG CANCER
     Dosage: 305 UNK, Q3W
     Route: 042
     Dates: start: 20110527
  3. PI3K INHIBITOR [Suspect]
     Indication: NON-SMALL CELL LUNG CANCER
     Dosage: 330 UNK, QD
     Route: 048
     Dates: start: 20110526
  4. CARBOPLATIN [Suspect]
     Indication: NON-SMALL CELL LUNG CANCER
     Dosage: 504 UNK, Q3W
     Route: 042
     Dates: start: 20110527

REACTIONS (1)
  - RASH [None]
